FAERS Safety Report 11052828 (Version 1)
Quarter: 2015Q2

REPORT INFORMATION
  Report Type: Spontaneous
  Country: US (occurrence: None)
  Receive Date: 20150420
  Receipt Date: 20150420
  Transmission Date: 20150821
  Serious: Yes (Life-Threatening, Hospitalization)
  Sender: FDA-Public Use
  Company Number: None

PATIENT
  Age: 41 Year
  Sex: Male

DRUGS (5)
  1. METHADONE [Concomitant]
     Active Substance: METHADONE HYDROCHLORIDE
  2. BARBADOS BLITZ POTPOURRI (SYNTHETIC MARIJUANA) [Suspect]
     Active Substance: JWH-018
     Dates: start: 20150418
  3. CLONOPIN [Concomitant]
     Active Substance: CLONAZEPAM
  4. ZYPREXA [Concomitant]
     Active Substance: OLANZAPINE
  5. NAPROXEN. [Concomitant]
     Active Substance: NAPROXEN

REACTIONS (2)
  - Depressed level of consciousness [None]
  - Fall [None]

NARRATIVE: CASE EVENT DATE: 20150418
